FAERS Safety Report 8934552 (Version 2)
Quarter: 2013Q2

REPORT INFORMATION
  Report Type: Spontaneous
  Country: JP (occurrence: JP)
  Receive Date: 20121129
  Receipt Date: 20130603
  Transmission Date: 20140414
  Serious: No
  Sender: FDA-Public Use
  Company Number: JP-ELI_LILLY_AND_COMPANY-JP201206008515

PATIENT
  Age: 85 Year
  Sex: Female

DRUGS (2)
  1. FORTEO [Suspect]
     Dosage: UNK
     Route: 058
     Dates: start: 20120618, end: 20121025
  2. FORTEO [Suspect]
     Dosage: UNK
     Route: 058
     Dates: end: 201302

REACTIONS (2)
  - Dizziness [Recovering/Resolving]
  - Nausea [Recovered/Resolved]
